FAERS Safety Report 21715635 (Version 1)
Quarter: 2022Q4

REPORT INFORMATION
  Report Type: Spontaneous
  Country: US (occurrence: None)
  Receive Date: 20221210
  Receipt Date: 20221210
  Transmission Date: 20230113
  Serious: Yes (unspecified)
  Sender: FDA-Public Use
  Company Number: None

PATIENT
  Age: 28 Year
  Sex: Female
  Weight: 48.15 kg

DRUGS (1)
  1. SALONPAS PAIN RELIEF [Suspect]
     Active Substance: MENTHOL\METHYL SALICYLATE
     Indication: Back pain
     Dates: start: 20221210, end: 20221210

REACTIONS (1)
  - Burns second degree [None]

NARRATIVE: CASE EVENT DATE: 20221210
